FAERS Safety Report 12448157 (Version 1)
Quarter: 2016Q2

REPORT INFORMATION
  Report Type: Spontaneous
  Country: US (occurrence: US)
  Receive Date: 20160608
  Receipt Date: 20160608
  Transmission Date: 20160815
  Serious: No
  Sender: FDA-Public Use
  Company Number: US-ELI_LILLY_AND_COMPANY-US201605011347

PATIENT
  Sex: Male

DRUGS (1)
  1. ERBITUX [Suspect]
     Active Substance: CETUXIMAB
     Indication: THROAT CANCER
     Dosage: UNK, UNKNOWN
     Route: 065

REACTIONS (2)
  - Dysgeusia [Unknown]
  - Dry mouth [Unknown]
